FAERS Safety Report 17894605 (Version 1)
Quarter: 2020Q2

REPORT INFORMATION
  Report Type: Spontaneous
  Country: CN (occurrence: CN)
  Receive Date: 20200615
  Receipt Date: 20200615
  Transmission Date: 20200714
  Serious: Yes (Hospitalization)
  Sender: FDA-Public Use
  Company Number: CN-ROCHE-2621912

PATIENT
  Age: 59 Year
  Sex: Male

DRUGS (10)
  1. XELODA [Suspect]
     Active Substance: CAPECITABINE
     Indication: METASTASES TO LIVER
     Route: 048
     Dates: start: 20180330, end: 20180601
  2. OXALIPLATIN. [Concomitant]
     Active Substance: OXALIPLATIN
     Indication: METASTASES TO LIVER
  3. IRINOTECAN [Concomitant]
     Active Substance: IRINOTECAN
     Dosage: 90MG ON DAY1, 180MG ON DAY8
     Route: 065
     Dates: start: 20180607, end: 20180901
  4. IRINOTECAN [Concomitant]
     Active Substance: IRINOTECAN
     Route: 065
     Dates: start: 2018
  5. AVASTIN [Suspect]
     Active Substance: BEVACIZUMAB
     Indication: RECTAL CANCER
     Route: 065
     Dates: start: 20190615, end: 20191023
  6. XELODA [Suspect]
     Active Substance: CAPECITABINE
     Dosage: 1.5G IN THE MORNING, 2.0 IN THE EVENING, DAY2-15
     Route: 048
     Dates: start: 20180607, end: 20180901
  7. OXALIPLATIN. [Concomitant]
     Active Substance: OXALIPLATIN
     Indication: RECTAL CANCER
     Route: 065
     Dates: start: 20180330, end: 20180601
  8. XELODA [Suspect]
     Active Substance: CAPECITABINE
     Indication: RECTAL CANCER
     Route: 048
     Dates: start: 2018
  9. RALTITREXED [Concomitant]
     Active Substance: RALTITREXED
     Route: 065
     Dates: start: 2018
  10. AVASTIN [Suspect]
     Active Substance: BEVACIZUMAB
     Indication: METASTASES TO LIVER

REACTIONS (2)
  - Hepatic failure [Unknown]
  - Skin exfoliation [Unknown]
